FAERS Safety Report 11399781 (Version 3)
Quarter: 2015Q3

REPORT INFORMATION
  Report Type: Report from Study
  Country: JP (occurrence: JP)
  Receive Date: 20150820
  Receipt Date: 20150928
  Transmission Date: 20151125
  Serious: Yes (Death, Other)
  Sender: FDA-Public Use
  Company Number: JP-OTSUKA-2015_007563

PATIENT

DRUGS (9)
  1. ESOMEPRAZOLE MAGNESIUM. [Concomitant]
     Active Substance: ESOMEPRAZOLE MAGNESIUM
     Indication: PROPHYLAXIS
     Dosage: 10 MG/DAY
     Route: 048
     Dates: end: 20150804
  2. AMLODIPINE BESILATE [Concomitant]
     Active Substance: AMLODIPINE BESYLATE
     Indication: PRODUCT USED FOR UNKNOWN INDICATION
     Dosage: 5 MG/DAY
     Route: 048
     Dates: end: 20150702
  3. AMINOLEBAN [Concomitant]
     Active Substance: AMINO ACIDS
     Indication: PRODUCT USED FOR UNKNOWN INDICATION
     Dosage: 50 G/DAY
     Route: 048
     Dates: end: 20150804
  4. URSO S [Concomitant]
     Indication: PRODUCT USED FOR UNKNOWN INDICATION
     Dosage: 900 MG/DAY
     Route: 048
     Dates: end: 20150804
  5. LASIX M [Concomitant]
     Active Substance: FUROSEMIDE
     Indication: FLUID RETENTION
     Dosage: 40 MG/DAY
     Route: 048
     Dates: end: 20150702
  6. KANAMYCIN [Concomitant]
     Active Substance: KANAMYCIN\KANAMYCIN A SULFATE
     Indication: PRODUCT USED FOR UNKNOWN INDICATION
     Dosage: 2000 MG/DAY
     Route: 048
     Dates: end: 20150702
  7. ALDACTONE A [Concomitant]
     Active Substance: SPIRONOLACTONE
     Indication: FLUID RETENTION
     Dosage: 50 MG/DAY
     Route: 048
     Dates: end: 20150804
  8. BIO-THREE [Concomitant]
     Active Substance: HERBALS
     Indication: PRODUCT USED FOR UNKNOWN INDICATION
     Dosage: 6 DF/DAY
     Route: 048
     Dates: end: 20150804
  9. TOLVAPTAN [Suspect]
     Active Substance: TOLVAPTAN
     Indication: OEDEMA DUE TO HEPATIC DISEASE
     Dosage: 7.5 MG, QD
     Route: 048
     Dates: start: 20150528, end: 20150804

REACTIONS (5)
  - Hypoalbuminaemia [Recovering/Resolving]
  - Hypoalbuminaemia [Recovering/Resolving]
  - Upper gastrointestinal haemorrhage [Fatal]
  - Oesophageal varices haemorrhage [Fatal]
  - Hypoalbuminaemia [Recovering/Resolving]

NARRATIVE: CASE EVENT DATE: 20150601
